FAERS Safety Report 10223827 (Version 3)
Quarter: 2015Q1

REPORT INFORMATION
  Report Type: Report from Study
  Country: JP (occurrence: JP)
  Receive Date: 20140609
  Receipt Date: 20150121
  Transmission Date: 20150720
  Serious: Yes (Death, Hospitalization)
  Sender: FDA-Public Use
  Company Number: JP-BAYER-2014-081195

PATIENT
  Age: 69 Year
  Sex: Male
  Weight: 55 kg

DRUGS (15)
  1. KERATINAMIN [Concomitant]
     Active Substance: UREA
     Indication: PALMAR-PLANTAR ERYTHRODYSAESTHESIA SYNDROME
  2. HIRUDOID [Concomitant]
     Active Substance: GLYCOSAMINOGLYCANS
     Indication: PALMAR-PLANTAR ERYTHRODYSAESTHESIA SYNDROME
  3. ALOSITOL [Concomitant]
     Active Substance: ALLOPURINOL
     Dosage: DAILY DOSE 100 MG
     Route: 048
  4. AMOBAN [Concomitant]
     Active Substance: ZOPICLONE
     Dosage: DAILY DOSE 7.5 MG
     Route: 048
  5. KERATINAMIN [Concomitant]
     Active Substance: UREA
     Indication: DRUG TOXICITY PROPHYLAXIS
     Dosage: UNK
     Route: 061
     Dates: start: 20140502, end: 20140523
  6. LANSOPRAZOLE. [Concomitant]
     Active Substance: LANSOPRAZOLE
     Dosage: DAILY DOSE 15 MG
     Route: 048
  7. MIYA-BM [Concomitant]
     Active Substance: CLOSTRIDIUM BUTYRICUM SPORES STRAIN M-55
     Dosage: DAILY DOSE 3 DF
     Route: 048
  8. SPIRIVA [Concomitant]
     Active Substance: TIOTROPIUM BROMIDE MONOHYDRATE
     Dosage: DAILY DOSE 18 ?G
     Route: 055
  9. FUROSEMIDE. [Concomitant]
     Active Substance: FUROSEMIDE
     Dosage: DAILY DOSE 40 MG
     Route: 048
  10. GOSHAJINKIGAN [Concomitant]
     Active Substance: HERBALS
     Dosage: DAILY DOSE 7.5 G
     Route: 048
  11. HIRUDOID [Concomitant]
     Active Substance: GLYCOSAMINOGLYCANS
     Indication: DRUG TOXICITY PROPHYLAXIS
     Dosage: UNK
     Route: 061
     Dates: start: 20140502, end: 20140523
  12. MYSER [Concomitant]
     Active Substance: DIFLUPREDNATE
     Indication: DRUG TOXICITY PROPHYLAXIS
     Dosage: UNK
     Route: 061
     Dates: start: 20140502, end: 20140523
  13. MYSER [Concomitant]
     Active Substance: DIFLUPREDNATE
     Indication: PALMAR-PLANTAR ERYTHRODYSAESTHESIA SYNDROME
  14. OXIS [Concomitant]
     Active Substance: FORMOTEROL FUMARATE
     Dosage: DAILY DOSE 9 ?G
     Route: 055
  15. STIVARGA [Suspect]
     Active Substance: REGORAFENIB
     Indication: COLORECTAL CANCER
     Dosage: ONE CYCLE IS ON FOR 3 WEEKS AND OFF FOR 1 WEEK
     Route: 048
     Dates: start: 20140502, end: 20140523

REACTIONS (3)
  - Palmar-plantar erythrodysaesthesia syndrome [Recovered/Resolved]
  - Malaise [Recovered/Resolved]
  - Colon cancer [Fatal]

NARRATIVE: CASE EVENT DATE: 20140509
